FAERS Safety Report 16963954 (Version 1)
Quarter: 2019Q4

REPORT INFORMATION
  Report Type: Spontaneous
  Country: PL (occurrence: PL)
  Receive Date: 20191026
  Receipt Date: 20191026
  Transmission Date: 20200122
  Serious: Yes (Life-Threatening)
  Sender: FDA-Public Use
  Company Number: PL-ACCORD-159232

PATIENT
  Age: 60 Year
  Sex: Male
  Weight: 100 kg

DRUGS (5)
  1. OXALIPLATINUM ACCORD [Suspect]
     Active Substance: OXALIPLATIN
     Indication: COLON CANCER
     Route: 042
     Dates: start: 20190118
  2. BEVACIZUMAB. [Suspect]
     Active Substance: BEVACIZUMAB
     Indication: COLON CANCER
     Dosage: FIFTH CYCLE OF CHEMOTHERAPY
     Route: 042
     Dates: start: 20190118
  3. ONDANSETRON [Concomitant]
     Active Substance: ONDANSETRON
  4. DEXAVET [Concomitant]
     Route: 042
  5. PHENAZOLINUM [Concomitant]
     Dosage: DOSE: 1 AMPOULE
     Route: 042

REACTIONS (4)
  - Blood pressure increased [Recovered/Resolved]
  - Micturition urgency [Recovered/Resolved]
  - Chest pain [Recovered/Resolved]
  - Feeling hot [Recovered/Resolved]

NARRATIVE: CASE EVENT DATE: 20190118
